FAERS Safety Report 6329227-9 (Version None)
Quarter: 2009Q3

REPORT INFORMATION
  Report Type: 
  Country: None (occurrence: None)
  Receive Date: 20090826
  Receipt Date: 20090815
  Transmission Date: 20100115
  Serious: Yes (Hospitalization)
  Sender: FDA-Public Use
  Company Number: US-PFIZER INC-2009255338

PATIENT
  Age: 79 Year
  Weight: 97.506 kg

DRUGS (9)
  1. SUNITINIB MALATE [Suspect]
     Indication: TRANSITIONAL CELL CARCINOMA
     Dosage: UNK
  2. CISPLATIN [Suspect]
     Indication: TRANSITIONAL CELL CARCINOMA
     Dosage: 70 MG/M2, EVERY 21 DAYS
     Dates: start: 20090625
  3. GEMCITABINE [Suspect]
     Indication: TRANSITIONAL CELL CARCINOMA
     Dosage: 1000 MG/M2, DAY 1, 8 EVERY 21DAYS
     Dates: start: 20090625
  4. ASPIRIN [Concomitant]
  5. ATENOLOL [Concomitant]
  6. CENTRUM SILVER [Concomitant]
  7. HYDROCHLOROTHIAZIDE [Concomitant]
  8. NEURONTIN [Concomitant]
  9. PRAVASTATIN [Concomitant]

REACTIONS (1)
  - LYMPHOCELE [None]
